FAERS Safety Report 8820194 (Version 4)
Quarter: 2013Q4

REPORT INFORMATION
  Report Type: Spontaneous
  Country: US (occurrence: US)
  Receive Date: 20121002
  Receipt Date: 20131225
  Transmission Date: 20140711
  Serious: Yes (Hospitalization, Other)
  Sender: FDA-Public Use
  Company Number: US-BIOGENIDEC-2012BI040815

PATIENT
  Age: 49 Year
  Sex: Female

DRUGS (6)
  1. TYSABRI [Suspect]
     Indication: MULTIPLE SCLEROSIS
     Route: 042
     Dates: start: 20070123, end: 20070123
  2. TYSABRI [Suspect]
     Indication: MULTIPLE SCLEROSIS
     Route: 042
     Dates: start: 20120723, end: 20120924
  3. CLONAZEPAM [Concomitant]
  4. TOPAMAX [Concomitant]
  5. ENSURE PLUS [Concomitant]
  6. TYLENOL [Concomitant]
     Indication: PAIN

REACTIONS (4)
  - Type IV hypersensitivity reaction [Recovered/Resolved]
  - Cardiac arrest [Recovered/Resolved]
  - Drug intolerance [Recovered/Resolved with Sequelae]
  - Mobility decreased [Recovered/Resolved]
